FAERS Safety Report 24013583 (Version 1)
Quarter: 2024Q2

REPORT INFORMATION
  Report Type: Spontaneous
  Country: CN (occurrence: CN)
  Receive Date: 20240626
  Receipt Date: 20240626
  Transmission Date: 20240716
  Serious: Yes (Other)
  Sender: FDA-Public Use
  Company Number: CN-ROCHE-10000002416

PATIENT
  Age: 67 Year
  Sex: Female

DRUGS (7)
  1. BEVACIZUMAB [Suspect]
     Active Substance: BEVACIZUMAB
     Indication: Adenocarcinoma
     Dosage: ON DAY 1
     Route: 042
  2. CAPECITABINE [Suspect]
     Active Substance: CAPECITABINE
     Indication: Adenocarcinoma
     Dosage: DAYS 1-14, 1.5 G ONCE DAILY IN THE MORNING; 1.0 G ONCE DAILY IN THE EVENING, 21 DAYS FOR 1 CYCLE
     Route: 048
  3. OXALIPLATIN [Suspect]
     Active Substance: OXALIPLATIN
     Indication: Adenocarcinoma
     Dosage: ON DAY 1
     Route: 042
  4. GEMCITABINE [Concomitant]
     Active Substance: GEMCITABINE
     Indication: Neoplasm malignant
     Route: 065
  5. TEGAFUR [Concomitant]
     Active Substance: TEGAFUR
     Indication: Neoplasm malignant
     Route: 065
  6. GIMERACIL [Concomitant]
     Active Substance: GIMERACIL
     Indication: Neoplasm malignant
     Route: 065
  7. OTERACIL POTASSIUM [Concomitant]
     Active Substance: OTERACIL POTASSIUM
     Indication: Neoplasm malignant
     Route: 065

REACTIONS (2)
  - Myelosuppression [Recovering/Resolving]
  - Off label use [Unknown]
